FAERS Safety Report 5326554-9 (Version None)
Quarter: 2007Q2

REPORT INFORMATION
  Report Type: 
  Country: None (occurrence: None)
  Receive Date: 20070510
  Receipt Date: 20070425
  Transmission Date: 20071010
  Serious: Yes (Hospitalization)
  Sender: FDA-Public Use
  Company Number: 013098

PATIENT
  Age: 49 Year
  Sex: Female
  Weight: 99.8 kg

DRUGS (1)
  1. CLARAVIS [Suspect]
     Indication: SWEAT GLAND INFECTION
     Dosage: 40 MG, QD, ORAL
     Route: 048
     Dates: start: 20070328, end: 20070418

REACTIONS (3)
  - KNEE ARTHROPLASTY [None]
  - MALAISE [None]
  - MOOD ALTERED [None]
